FAERS Safety Report 7123873-0 (Version None)
Quarter: 2010Q4

REPORT INFORMATION
  Report Type: 
  Country: None (occurrence: None)
  Receive Date: 20101125
  Receipt Date: 20101122
  Transmission Date: 20110411
  Serious: Yes (Death, Hospitalization)
  Sender: FDA-Public Use
  Company Number: US-ELI_LILLY_AND_COMPANY-US201010002168

PATIENT
  Sex: Male

DRUGS (14)
  1. GEMCITABINE HCL [Suspect]
     Indication: PANCREATIC CARCINOMA
     Dosage: 1000 MG/M2, WEEKLY (1/W)
     Dates: start: 20100916, end: 20100928
  2. PACLITAXEL [Suspect]
     Indication: PANCREATIC CARCINOMA
     Dosage: 125 MG/M2, WEEKLY (1/W)
     Dates: start: 20100916, end: 20100928
  3. ASPIRIN [Concomitant]
     Indication: INFARCTION
     Dosage: UNK, UNK
     Route: 048
     Dates: start: 20100924
  4. SODIUM CHLORIDE [Concomitant]
     Indication: PLATELET COUNT DECREASED
     Dosage: 1000 ML, UNK
     Route: 042
     Dates: start: 20100925
  5. ACETAMINOPHEN [Concomitant]
     Indication: PAIN
  6. AMLODIPINE [Concomitant]
     Indication: HYPERTENSION
  7. ATIVAN [Concomitant]
     Indication: ANXIETY
  8. CIPROFLOXACIN [Concomitant]
     Indication: URINARY TRACT INFECTION
  9. DEXAMETHASONE [Concomitant]
     Indication: PROPHYLAXIS
  10. FOLIC ACID [Concomitant]
     Indication: VITAMIN SUPPLEMENTATION
  11. INSULIN [Concomitant]
     Indication: HYPERGLYCAEMIA
  12. MAGNESIUM HYDROXIDE [Concomitant]
     Indication: CONSTIPATION
  13. ONDANSETRON [Concomitant]
     Indication: PROPHYLAXIS
  14. COMPAZINE [Concomitant]
     Indication: PROPHYLAXIS

REACTIONS (2)
  - ISCHAEMIC CEREBRAL INFARCTION [None]
  - PLATELET COUNT DECREASED [None]
